FAERS Safety Report 6866109-8 (Version None)
Quarter: 2010Q3

REPORT INFORMATION
  Report Type: 
  Country: None (occurrence: None)
  Receive Date: 20100722
  Receipt Date: 20100715
  Transmission Date: 20110219
  Serious: Yes (Other)
  Sender: FDA-Public Use
  Company Number: US-ELI_LILLY_AND_COMPANY-US201007003970

PATIENT
  Sex: Male

DRUGS (4)
  1. HUMULIN 70/30 [Suspect]
     Indication: DIABETES MELLITUS
     Dosage: 11 U, EACH MORNING
  2. HUMULIN 70/30 [Suspect]
     Dosage: 6 U, EACH EVENING
  3. HUMALOG MIX 75/25 [Suspect]
     Indication: DIABETES MELLITUS
     Dosage: 11 U, EACH MORNING
  4. HUMALOG MIX 75/25 [Suspect]
     Dosage: 6 U, EACH EVENING

REACTIONS (3)
  - CARDIAC OPERATION [None]
  - GLAUCOMA [None]
  - VISUAL IMPAIRMENT [None]
